FAERS Safety Report 9270730 (Version 1)
Quarter: 2013Q2

REPORT INFORMATION
  Report Type: Spontaneous
  Country: GB (occurrence: GB)
  Receive Date: 20130503
  Receipt Date: 20130503
  Transmission Date: 20140414
  Serious: Yes (Hospitalization)
  Sender: FDA-Public Use
  Company Number: GB-TEVA-400580ISR

PATIENT
  Age: 52 Year
  Sex: Female
  Weight: 80 kg

DRUGS (7)
  1. BISOPROLOL [Suspect]
     Indication: TACHYCARDIA
     Route: 048
     Dates: start: 20130108
  2. BISOPROLOL [Suspect]
     Dates: end: 201302
  3. RAMIPRIL [Concomitant]
  4. BENDROFLUMETHIAZIDE [Concomitant]
  5. LERCANIDIPINE [Concomitant]
  6. CO-CODAMOL [Concomitant]
  7. ZIMOVANE [Concomitant]

REACTIONS (5)
  - Bradycardia [Recovered/Resolved]
  - Hypotension [Recovered/Resolved]
  - Feeling cold [Recovered/Resolved]
  - Thrombosis [Unknown]
  - Pulmonary embolism [Unknown]
